FAERS Safety Report 23942800 (Version 1)
Quarter: 2024Q2

REPORT INFORMATION
  Report Type: Other
  Country: US (occurrence: None)
  Receive Date: 20240605
  Receipt Date: 20240605
  Transmission Date: 20240715
  Serious: Yes (Hospitalization)
  Sender: FDA-Public Use
  Company Number: US-ROCHE-3572123

PATIENT
  Age: 67 Year
  Sex: Female
  Weight: 74.456 kg

DRUGS (9)
  1. ACTEMRA [Suspect]
     Active Substance: TOCILIZUMAB
     Indication: Rheumatoid arthritis
     Dosage: ANTICIPATED DATE OF TREATMENT REPORTED ON 14/MAY/2023?INJECT 0.9ML EVERY WEEK
     Route: 058
     Dates: start: 20230518, end: 20240518
  2. ACTEMRA [Suspect]
     Active Substance: TOCILIZUMAB
  3. ACTEMRA [Suspect]
     Active Substance: TOCILIZUMAB
     Indication: Rheumatoid arthritis
  4. ACTEMRA [Suspect]
     Active Substance: TOCILIZUMAB
  5. METHOTREXATE [Concomitant]
     Active Substance: METHOTREXATE
  6. NAPROXEN [Concomitant]
     Active Substance: NAPROXEN
  7. VOLTAREN [Concomitant]
     Active Substance: DICLOFENAC SODIUM
  8. ZANTAC [Concomitant]
     Active Substance: RANITIDINE HYDROCHLORIDE
  9. ZITHROMAX [Concomitant]
     Active Substance: AZITHROMYCIN DIHYDRATE

REACTIONS (2)
  - Colitis [Recovered/Resolved]
  - Diverticulitis [Recovered/Resolved]
